FAERS Safety Report 8532445-2 (Version None)
Quarter: 2012Q3

REPORT INFORMATION
  Report Type: 
  Country: None (occurrence: None)
  Receive Date: 20120724
  Receipt Date: 20120718
  Transmission Date: 20120928
  Serious: Yes (Other)
  Sender: FDA-Public Use
  Company Number: FR-MSD-1008FRA00073

PATIENT

DRUGS (3)
  1. METFORMIN HCL [Concomitant]
     Route: 048
  2. ESTRADIOL [Concomitant]
  3. JANUVIA [Suspect]
     Indication: TYPE 2 DIABETES MELLITUS
     Dosage: 100 MG, QD
     Route: 048
     Dates: start: 20091214, end: 20100611

REACTIONS (3)
  - PANCREATITIS [None]
  - ABDOMINAL PAIN [None]
  - LIPASE INCREASED [None]
